FAERS Safety Report 21607558 (Version 1)
Quarter: 2022Q4

REPORT INFORMATION
  Report Type: Spontaneous
  Country: GB (occurrence: GB)
  Receive Date: 20221117
  Receipt Date: 20221117
  Transmission Date: 20230113
  Serious: Yes (Other)
  Sender: FDA-Public Use
  Company Number: GB-SUN PHARMACEUTICAL INDUSTRIES LTD-2022R1-364044

PATIENT
  Age: 42 Year
  Sex: Female

DRUGS (5)
  1. ENTACAPONE [Suspect]
     Active Substance: ENTACAPONE
     Indication: Parkinson^s disease
     Dosage: 200 MILLIGRAM, TID
     Route: 065
  2. AMANTADINE [Suspect]
     Active Substance: AMANTADINE
     Indication: Parkinson^s disease
     Dosage: UNK
     Route: 065
  3. RASAGILINE [Suspect]
     Active Substance: RASAGILINE
     Indication: Parkinson^s disease
     Dosage: UNK
     Route: 065
  4. CARBIDOPA\LEVODOPA [Suspect]
     Active Substance: CARBIDOPA\LEVODOPA
     Indication: Parkinson^s disease
     Dosage: 250 MILLIGRAM, DAILY
     Route: 065
  5. ROPINIROLE [Suspect]
     Active Substance: ROPINIROLE
     Indication: Parkinson^s disease
     Dosage: 18 MILLIGRAM
     Route: 065

REACTIONS (3)
  - Impulse-control disorder [Unknown]
  - Treatment noncompliance [Unknown]
  - Somatic symptom disorder of pregnancy [Unknown]
